FAERS Safety Report 9158953 (Version 1)
Quarter: 2013Q1

REPORT INFORMATION
  Report Type: Spontaneous
  Country: RU (occurrence: None)
  Receive Date: 20130213
  Receipt Date: 20130213
  Transmission Date: 20140127
  Serious: Yes (Other)
  Sender: FDA-Public Use
  Company Number: RU-1196457

PATIENT
  Age: 64 Year
  Sex: Male

DRUGS (1)
  1. TRAVATAN [Suspect]
     Dosage: (OPHTHALMIC)

REACTIONS (1)
  - Macular oedema [None]
